FAERS Safety Report 7564526-4 (Version None)
Quarter: 2011Q2

REPORT INFORMATION
  Report Type: 
  Country: None (occurrence: None)
  Receive Date: 20110622
  Receipt Date: 20100719
  Transmission Date: 20111010
  Serious: Yes (Other)
  Sender: FDA-Public Use
  Company Number: US-MYLANLABS-2010S1008081

PATIENT
  Age: 34 Year
  Sex: Male
  Weight: 80 kg

DRUGS (6)
  1. PROPRANOLOL [Concomitant]
     Dates: start: 20100510, end: 20100524
  2. RISPERDAL [Concomitant]
     Dosage: EVERY 2 WEEKS
     Route: 030
     Dates: start: 20100204, end: 20100608
  3. RISPERDAL [Concomitant]
     Route: 048
     Dates: start: 20100212, end: 20100524
  4. CLOZAPINE [Suspect]
     Indication: SCHIZOPHRENIA
     Route: 048
     Dates: start: 20100422, end: 20100526
  5. CLOZAPINE [Suspect]
     Route: 048
     Dates: start: 20100422, end: 20100526
  6. TRAZODONE HCL [Concomitant]

REACTIONS (2)
  - GRANULOCYTOPENIA [None]
  - LEUKOPENIA [None]
